FAERS Safety Report 5449615-2 (Version None)
Quarter: 2007Q3

REPORT INFORMATION
  Report Type: 
  Country: None (occurrence: None)
  Receive Date: 20070912
  Receipt Date: 20070830
  Transmission Date: 20080115
  Serious: Yes (Hospitalization)
  Sender: FDA-Public Use
  Company Number: PHEH2007US06707

PATIENT
  Age: 70 Year
  Sex: Female

DRUGS (10)
  1. ZELNORM [Suspect]
     Indication: IRRITABLE BOWEL SYNDROME
     Dosage: 2 MG, BID
     Dates: start: 20050801, end: 20060801
  2. LOPRESSOR [Concomitant]
     Dosage: 12.5 MG, BID
     Route: 048
  3. ASPIRIN [Concomitant]
     Dosage: 81 MG, QD
     Route: 048
  4. LOVENOX [Concomitant]
     Dosage: 40 MG, QD
     Route: 058
  5. MIACALCIN [Concomitant]
  6. ASPIRIN [Concomitant]
     Dosage: 81 MG, QD
  7. NORVASC [Concomitant]
     Dosage: 2.5 MG, QD
  8. PROTONIX [Concomitant]
     Dosage: 40 MG, QD
  9. NIACIN [Concomitant]
     Dosage: 500 MG, QD
  10. ZETIA [Concomitant]
     Dosage: 10 MG, QD

REACTIONS (12)
  - ANGINA PECTORIS [None]
  - CATHETERISATION CARDIAC ABNORMAL [None]
  - CHEST PAIN [None]
  - DIZZINESS [None]
  - DRUG INEFFECTIVE [None]
  - EJECTION FRACTION DECREASED [None]
  - GALLBLADDER DISORDER [None]
  - GASTROOESOPHAGEAL REFLUX DISEASE [None]
  - MITRAL VALVE INCOMPETENCE [None]
  - MYOCARDIAL ISCHAEMIA [None]
  - PERICARDIAL EFFUSION [None]
  - TRICUSPID VALVE INCOMPETENCE [None]
